FAERS Safety Report 21651313 (Version 1)
Quarter: 2022Q4

REPORT INFORMATION
  Report Type: Spontaneous
  Country: AU (occurrence: AU)
  Receive Date: 20221128
  Receipt Date: 20221128
  Transmission Date: 20230113
  Serious: Yes (Hospitalization, Other)
  Sender: FDA-Public Use
  Company Number: AU-OTSUKA-2022_052630

PATIENT
  Age: 45 Year
  Sex: Male

DRUGS (22)
  1. ARIPIPRAZOLE [Suspect]
     Active Substance: ARIPIPRAZOLE
     Indication: Prophylaxis
     Dosage: UNK (UNKNOWN DOSE)
     Route: 048
  2. ARIPIPRAZOLE [Suspect]
     Active Substance: ARIPIPRAZOLE
     Indication: Schizophrenia
     Dosage: 30 MG, QD (IN THE EVENING, ORALLY)
     Route: 048
     Dates: start: 201912
  3. ARIPIPRAZOLE [Suspect]
     Active Substance: ARIPIPRAZOLE
     Dosage: 30 MG, QD (IN THE EVENING)
     Route: 048
  4. CLOZAPINE [Suspect]
     Active Substance: CLOZAPINE
     Indication: Schizophrenia
     Dosage: 12.5 MG, 5XDAY
     Route: 065
     Dates: end: 20220224
  5. CLOZAPINE [Suspect]
     Active Substance: CLOZAPINE
     Dosage: 25 MG, QD
     Route: 065
     Dates: end: 20220227
  6. CLOMIPRAMINE [Suspect]
     Active Substance: CLOMIPRAMINE
     Indication: Schizophrenia
     Dosage: 150 MG
     Route: 048
     Dates: start: 2018
  7. CLOMIPRAMINE [Suspect]
     Active Substance: CLOMIPRAMINE
     Dosage: 5 DF, QD (25 MG)
     Route: 048
     Dates: start: 201912
  8. SAPHRIS [Suspect]
     Active Substance: ASENAPINE MALEATE
     Indication: Prophylaxis
     Dosage: 20 MG
     Route: 050
     Dates: start: 2018, end: 201910
  9. SAPHRIS [Suspect]
     Active Substance: ASENAPINE MALEATE
     Indication: Schizophrenia
     Dosage: 20 MG, QD (AT NIGHT)
     Route: 050
     Dates: start: 201912
  10. SAPHRIS [Suspect]
     Active Substance: ASENAPINE MALEATE
     Dosage: 10 MG (DOSE REDUCED FROM 20 MG)
     Route: 050
  11. SAPHRIS [Suspect]
     Active Substance: ASENAPINE MALEATE
     Dosage: 1 DF
     Route: 050
     Dates: start: 2021, end: 202110
  12. SAPHRIS [Suspect]
     Active Substance: ASENAPINE MALEATE
     Dosage: 1 DF
     Route: 050
     Dates: start: 202201
  13. SAPHRIS [Suspect]
     Active Substance: ASENAPINE MALEATE
     Dosage: 20 MG
     Route: 050
     Dates: start: 2022
  14. SAPHRIS [Suspect]
     Active Substance: ASENAPINE MALEATE
     Dosage: 3 DF (DOSE OF 10 MG, 1 WAFER IN TE MORNING AND 2 WAFER IN THE EVENING)
     Route: 050
     Dates: start: 202205
  15. REXULTI [Concomitant]
     Active Substance: BREXPIPRAZOLE
     Indication: Product used for unknown indication
     Dosage: UNK
     Route: 065
     Dates: end: 2018
  16. ASCORBIC ACID [Concomitant]
     Active Substance: ASCORBIC ACID
     Indication: Prophylaxis
     Dosage: UNK
     Route: 065
  17. ATORVASTATIN [Concomitant]
     Active Substance: ATORVASTATIN
     Indication: Product used for unknown indication
     Dosage: UNK
     Route: 065
  18. GEMFIBROZIL [Concomitant]
     Active Substance: GEMFIBROZIL
     Indication: Hypercholesterolaemia
     Dosage: UNK
     Route: 065
  19. PALIPERIDONE [Concomitant]
     Active Substance: PALIPERIDONE
     Indication: Product used for unknown indication
     Dosage: 1 DF (UNSPECIFIED)
     Route: 065
  20. RISPERIDONE [Concomitant]
     Active Substance: RISPERIDONE
     Indication: Product used for unknown indication
     Dosage: 0.5 MG, QD (AT NIGHT)
     Route: 065
     Dates: start: 202111
  21. RISPERIDONE [Concomitant]
     Active Substance: RISPERIDONE
     Dosage: 1 MG, QD (AT NIGHT)
     Route: 065
     Dates: end: 202111
  22. RISPERIDONE [Concomitant]
     Active Substance: RISPERIDONE
     Dosage: UNK (TITRATED UP)
     Route: 065
     Dates: start: 202201, end: 20220124

REACTIONS (16)
  - Myocarditis [Recovering/Resolving]
  - Pericardial effusion [Unknown]
  - Cholelithiasis [Recovered/Resolved]
  - Lower respiratory tract infection [Unknown]
  - Schizophrenia [Recovered/Resolved]
  - Type 2 diabetes mellitus [Recovering/Resolving]
  - Hallucination, auditory [Unknown]
  - Electrocardiogram QT prolonged [Unknown]
  - Syncope [Recovered/Resolved]
  - Leukopenia [Recovered/Resolved]
  - COVID-19 [Recovered/Resolved]
  - Social anxiety disorder [Unknown]
  - Paranoia [Unknown]
  - Iron deficiency anaemia [Unknown]
  - Pyrexia [Unknown]
  - Product use in unapproved indication [Unknown]

NARRATIVE: CASE EVENT DATE: 20191220
